FAERS Safety Report 4541641-0 (Version None)
Quarter: 2004Q4

REPORT INFORMATION
  Report Type: 
  Country: None (occurrence: None)
  Receive Date: 20041227
  Receipt Date: 20041217
  Transmission Date: 20050328
  Serious: Yes (Other)
  Sender: FDA-Public Use
  Company Number: 2004-11-1368

PATIENT
  Age: 46 Year
  Sex: Male

DRUGS (8)
  1. ROFERON-A [Suspect]
     Indication: CHRONIC MYELOID LEUKAEMIA
     Dosage: SEE IMAGE
     Dates: start: 19900201
  2. ROFERON-A [Suspect]
     Indication: CHRONIC MYELOID LEUKAEMIA
     Dosage: SEE IMAGE
     Dates: start: 19900201
  3. ROFERON-A [Suspect]
     Indication: CHRONIC MYELOID LEUKAEMIA
     Dosage: SEE IMAGE
     Dates: start: 19920101
  4. ROFERON-A [Suspect]
     Indication: CHRONIC MYELOID LEUKAEMIA
     Dosage: SEE IMAGE
     Dates: start: 19920401
  5. HYDROXYUREA [Concomitant]
  6. METOCLOPRAMIDE [Concomitant]
  7. ALLOPURINOL [Concomitant]
  8. LOMOTIL [Concomitant]

REACTIONS (22)
  - BLOOD ALBUMIN DECREASED [None]
  - BODY TEMPERATURE INCREASED [None]
  - COMPLEMENT FACTOR C3 DECREASED [None]
  - COMPLEMENT FACTOR C4 DECREASED [None]
  - COUGH [None]
  - CREPITATIONS [None]
  - DIARRHOEA [None]
  - DYSPNOEA [None]
  - HAEMOGLOBIN DECREASED [None]
  - HAEMOLYTIC URAEMIC SYNDROME [None]
  - HEART RATE INCREASED [None]
  - HYPERTENSION [None]
  - NAUSEA [None]
  - PLATELET COUNT DECREASED [None]
  - PROTEINURIA [None]
  - PULMONARY OEDEMA [None]
  - PYREXIA [None]
  - RENAL FAILURE [None]
  - RETICULOCYTE COUNT INCREASED [None]
  - THROMBOTIC MICROANGIOPATHY [None]
  - VOMITING [None]
  - WHITE BLOOD CELL COUNT INCREASED [None]
